FAERS Safety Report 8298112-8 (Version None)
Quarter: 2012Q2

REPORT INFORMATION
  Report Type: 
  Country: None (occurrence: None)
  Receive Date: 20120419
  Receipt Date: 20120328
  Transmission Date: 20120825
  Serious: Yes (Hospitalization)
  Sender: FDA-Public Use
  Company Number: GB-BAXTER-2011BH038101

PATIENT
  Sex: Male
  Weight: 12.5 kg

DRUGS (29)
  1. PHOSPHATE SANDOZ [Concomitant]
     Route: 065
     Dates: start: 20120120
  2. ACETAMINOPHEN [Concomitant]
     Route: 065
     Dates: start: 20111224
  3. METANIUM [Concomitant]
     Route: 061
     Dates: start: 20111124
  4. TRIMETHOPRIM [Concomitant]
     Route: 065
  5. VINCRISTINE [Suspect]
     Indication: RHABDOMYOSARCOMA
     Route: 042
     Dates: start: 20111117
  6. GRANISETRON  HCL [Concomitant]
     Route: 065
     Dates: start: 20111119
  7. PHOSPHATE SANDOZ [Concomitant]
     Route: 065
  8. CETRABEN [Concomitant]
     Route: 061
     Dates: start: 20111211, end: 20120105
  9. CO-TRIMAZOLE [Concomitant]
     Route: 065
  10. FLUCONAZOLE [Concomitant]
     Route: 065
     Dates: start: 20111125
  11. FLUCONAZOLE [Concomitant]
     Route: 065
     Dates: start: 20111218
  12. CALAMINE [Concomitant]
     Route: 061
     Dates: start: 20111206
  13. DOXORUBICIN HCL [Suspect]
     Indication: RHABDOMYOSARCOMA
     Route: 042
     Dates: start: 20111117
  14. MOVIPREP [Concomitant]
     Route: 065
     Dates: start: 20111106
  15. IFOSFAMIDE [Suspect]
     Indication: RHABDOMYOSARCOMA
     Route: 042
     Dates: start: 20111117
  16. BEVACIZUMAB [Suspect]
     Indication: RHABDOMYOSARCOMA
     Route: 042
     Dates: start: 20111117
  17. DACTINOMYCIN [Suspect]
     Indication: RHABDOMYOSARCOMA
     Route: 042
     Dates: start: 20111117
  18. OXYBUTYNIN [Concomitant]
     Route: 065
     Dates: start: 20111108, end: 20120124
  19. INSTILLAGEL [Concomitant]
     Route: 061
     Dates: start: 20111121
  20. GRANISETRON  HCL [Concomitant]
     Route: 065
     Dates: start: 20111231
  21. CEPHALEXIN [Concomitant]
     Route: 065
     Dates: start: 20111211
  22. METOCLOPRAMIDE [Concomitant]
     Route: 065
  23. ACETAMINOPHEN [Concomitant]
     Route: 065
     Dates: start: 20111122
  24. ORAMORPH SR [Concomitant]
     Route: 065
     Dates: start: 20111124
  25. ORAMORPH SR [Concomitant]
     Route: 065
     Dates: start: 20120104
  26. ORAMORPH SR [Concomitant]
     Route: 065
     Dates: start: 20120112
  27. PYRIDOXINE HCL [Concomitant]
     Route: 065
     Dates: start: 20111229
  28. METOCLOPRAMIDE [Concomitant]
     Route: 065
     Dates: start: 20111121
  29. FENTANYL [Concomitant]
     Route: 061
     Dates: start: 20111216, end: 20120126

REACTIONS (5)
  - FLUID INTAKE REDUCED [None]
  - WEIGHT DECREASED [None]
  - FEBRILE NEUTROPENIA [None]
  - VOMITING [None]
  - ABDOMINAL PAIN [None]
